FAERS Safety Report 13646419 (Version 1)
Quarter: 2017Q2

REPORT INFORMATION
  Report Type: Spontaneous
  Country: GB (occurrence: GB)
  Receive Date: 20170613
  Receipt Date: 20170613
  Transmission Date: 20170830
  Serious: Yes (Death, Other)
  Sender: FDA-Public Use
  Company Number: GB-TEVA-775196ACC

PATIENT
  Age: 74 Year
  Sex: Female

DRUGS (2)
  1. ADVAGRAF (ASTELLA PHARMA LTD) [Suspect]
     Active Substance: TACROLIMUS
     Dosage: 1 MILLIGRAM DAILY;
     Route: 065
  2. MYFENAX [Suspect]
     Active Substance: MYCOPHENOLATE MOFETIL
     Dosage: 500 MILLIGRAM DAILY;
     Route: 065

REACTIONS (1)
  - Death [Fatal]

NARRATIVE: CASE EVENT DATE: 20170530
